FAERS Safety Report 15521442 (Version 1)
Quarter: 2018Q4

REPORT INFORMATION
  Report Type: Spontaneous
  Country: US (occurrence: US)
  Receive Date: 20181012
  Receipt Date: 20181012
  Transmission Date: 20190205
  Serious: Yes (Hospitalization, Other)
  Sender: FDA-Public Use
  Company Number: None

PATIENT
  Age: 18 Year
  Sex: Male

DRUGS (1)
  1. PROLIXIN FLUPHENAZINE [Suspect]
     Active Substance: FLUPHENAZINE
     Dates: start: 20121205, end: 20121208

REACTIONS (6)
  - Visual impairment [None]
  - Lip swelling [None]
  - Posture abnormal [None]
  - Vision blurred [None]
  - Swelling face [None]
  - Dysarthria [None]

NARRATIVE: CASE EVENT DATE: 20121205
